FAERS Safety Report 7325309-3 (Version None)
Quarter: 2011Q1

REPORT INFORMATION
  Report Type: 
  Country: None (occurrence: None)
  Receive Date: 20110302
  Receipt Date: 20110218
  Transmission Date: 20110831
  Serious: Yes (Hospitalization, Other)
  Sender: FDA-Public Use
  Company Number: DK-BAYER-2010-000371

PATIENT
  Sex: Female

DRUGS (1)
  1. MIRENA [Suspect]
     Indication: MIGRAINE
     Dosage: 20 MCG/24HR, CONT
     Dates: start: 20101104, end: 20101101

REACTIONS (3)
  - UTERINE INFECTION [None]
  - ABDOMINAL PAIN [None]
  - DEVICE DIFFICULT TO USE [None]
